FAERS Safety Report 6938366-0 (Version None)
Quarter: 2010Q3

REPORT INFORMATION
  Report Type: 
  Country: None (occurrence: None)
  Receive Date: 20100824
  Receipt Date: 20100816
  Transmission Date: 20110219
  Serious: Yes (Other)
  Sender: FDA-Public Use
  Company Number: JP-PFIZER INC-2010102269

PATIENT

DRUGS (3)
  1. CHAMPIX [Suspect]
     Dosage: 0.5 MG, 1X/DAY
  2. CHAMPIX [Suspect]
     Dosage: 0.5 MG, 2X/DAY
  3. CHAMPIX [Suspect]
     Dosage: 1 MG, 2X/DAY

REACTIONS (1)
  - GASTROINTESTINAL DISORDER [None]
